FAERS Safety Report 25872215 (Version 2)
Quarter: 2025Q4

REPORT INFORMATION
  Report Type: Spontaneous
  Country: US (occurrence: US)
  Receive Date: 20251002
  Receipt Date: 20251007
  Transmission Date: 20260117
  Serious: Yes (Life-Threatening, Hospitalization, Other)
  Sender: SANOFI AVENTIS
  Company Number: US-DialogSolutions-SAAVPROD-PI825659-C1

PATIENT
  Age: 56 Year
  Sex: Male

DRUGS (9)
  1. ENOXAPARIN SODIUM [Suspect]
     Active Substance: ENOXAPARIN SODIUM
     Indication: Thrombosis prophylaxis
     Dosage: UNK UNK, QD
     Route: 058
  2. HEPARIN [Suspect]
     Active Substance: HEPARIN SODIUM
     Dosage: DURING THE CABG SURGERY
  3. CEFEPIME [Concomitant]
     Active Substance: CEFEPIME HYDROCHLORIDE
     Indication: Pneumonia
     Dosage: UNK
  4. VANCOMYCIN [Concomitant]
     Active Substance: VANCOMYCIN
     Indication: Pneumonia
     Dosage: UNK
  5. CEFPODOXIME [Concomitant]
     Active Substance: CEFPODOXIME
     Indication: Pneumonia
     Dosage: UNK
  6. CEFPODOXIME [Concomitant]
     Active Substance: CEFPODOXIME
     Indication: Antibiotic therapy
  7. AZITHROMYCIN [Concomitant]
     Active Substance: AZITHROMYCIN
     Indication: Pneumonia
     Dosage: UNK
  8. AZITHROMYCIN [Concomitant]
     Active Substance: AZITHROMYCIN
     Indication: Antibiotic therapy
  9. PIPERACILLIN AND TAZOBACTAM [Concomitant]
     Active Substance: PIPERACILLIN SODIUM\TAZOBACTAM SODIUM
     Indication: Pneumonia
     Dosage: UNK

REACTIONS (16)
  - Primary adrenal insufficiency [Recovering/Resolving]
  - Diabetic ketoacidosis [Recovered/Resolved]
  - Heparin-induced thrombocytopenia [Recovering/Resolving]
  - Adrenal haemorrhage [Recovering/Resolving]
  - Abdominal pain [Recovering/Resolving]
  - Nausea [Recovering/Resolving]
  - Vomiting [Recovering/Resolving]
  - Diarrhoea [Recovering/Resolving]
  - Abdominal tenderness [Recovering/Resolving]
  - Pyrexia [Recovered/Resolved]
  - Mental status changes [Recovering/Resolving]
  - Dyspnoea [Recovering/Resolving]
  - Hypotension [Recovered/Resolved]
  - Leukocytosis [Recovering/Resolving]
  - Adrenomegaly [Recovering/Resolving]
  - Hyponatraemia [Recovered/Resolved]
